FAERS Safety Report 16030065 (Version 3)
Quarter: 2019Q2

REPORT INFORMATION
  Report Type: Spontaneous
  Country: US (occurrence: US)
  Receive Date: 20190304
  Receipt Date: 20190413
  Transmission Date: 20190711
  Serious: Yes (Other)
  Sender: FDA-Public Use
  Company Number: US-009507513-1902USA011763

PATIENT
  Age: 37 Year
  Sex: Female

DRUGS (2)
  1. NEXPLANON [Suspect]
     Active Substance: ETONOGESTREL
     Dosage: 1 ROD,UNK
     Route: 059
     Dates: start: 20190205
  2. NEXPLANON [Suspect]
     Active Substance: ETONOGESTREL
     Dosage: 1ROD, UNK
     Route: 059
     Dates: start: 20190116, end: 20190205

REACTIONS (4)
  - Arthralgia [Recovered/Resolved with Sequelae]
  - Pain in extremity [Recovered/Resolved with Sequelae]
  - Device deployment issue [Recovered/Resolved with Sequelae]
  - Device dislocation [Recovered/Resolved with Sequelae]

NARRATIVE: CASE EVENT DATE: 20190116
